FAERS Safety Report 21813012 (Version 1)
Quarter: 2023Q1

REPORT INFORMATION
  Report Type: Spontaneous
  Country: US (occurrence: None)
  Receive Date: 20230102
  Receipt Date: 20230102
  Transmission Date: 20230417
  Serious: No
  Sender: FDA-Public Use
  Company Number: None

PATIENT
  Age: 80 Year
  Sex: Female
  Weight: 52 kg

DRUGS (1)
  1. DUPIXENT [Suspect]
     Active Substance: DUPILUMAB
     Indication: Dermatitis atopic
     Dosage: FREQUENCY : ONCE;?
     Route: 058
     Dates: start: 20221224

REACTIONS (4)
  - Oropharyngeal pain [None]
  - Dysphonia [None]
  - Muscle spasms [None]
  - Injection site pain [None]

NARRATIVE: CASE EVENT DATE: 20221224
